FAERS Safety Report 6673437-8 (Version None)
Quarter: 2010Q2

REPORT INFORMATION
  Report Type: 
  Country: None (occurrence: None)
  Receive Date: 20100408
  Receipt Date: 20100329
  Transmission Date: 20101027
  Serious: Yes (Other)
  Sender: FDA-Public Use
  Company Number: US-PFIZER INC-2010039926

PATIENT
  Sex: Male

DRUGS (3)
  1. LIPITOR [Suspect]
  2. MICARDIS [Suspect]
  3. LASIX [Suspect]

REACTIONS (1)
  - BLOOD CREATININE INCREASED [None]
